FAERS Safety Report 8398090 (Version 2)
Quarter: 2013Q3

REPORT INFORMATION
  Report Type: Spontaneous
  Country: US (occurrence: US)
  Receive Date: 20120209
  Receipt Date: 20130717
  Transmission Date: 20140515
  Serious: Yes (Death, Other)
  Sender: FDA-Public Use
  Company Number: US-CELGENEUS-163-20785-12020085

PATIENT
  Sex: 0

DRUGS (4)
  1. THALOMID [Suspect]
     Indication: PLASMA CELL MYELOMA
     Route: 048
  2. FLUCONAZOLE [Concomitant]
     Indication: PROPHYLAXIS
     Route: 065
  3. ACYCLOVIR [Concomitant]
     Indication: PROPHYLAXIS
     Route: 065
  4. CIPROFLOXACIN [Concomitant]
     Indication: PROPHYLAXIS
     Route: 065

REACTIONS (6)
  - Engraftment syndrome [Fatal]
  - Immunosuppression [Fatal]
  - Engraftment syndrome [Unknown]
  - Graft versus host disease in intestine [Unknown]
  - Graft versus host disease in skin [Unknown]
  - Graft versus host disease in liver [Unknown]
